FAERS Safety Report 9292332 (Version 2)
Quarter: 2013Q2

REPORT INFORMATION
  Report Type: Report from Study
  Country: US (occurrence: US)
  Receive Date: 20130516
  Receipt Date: 20130612
  Transmission Date: 20140414
  Serious: Yes (Death)
  Sender: FDA-Public Use
  Company Number: PHEH2013US010774

PATIENT
  Age: 62 Year
  Sex: Female

DRUGS (2)
  1. GLEEVEC [Suspect]
     Indication: ACUTE LYMPHOCYTIC LEUKAEMIA
     Dosage: 600 MG (100  MG AMD 400 MG)
     Route: 048
     Dates: start: 201210, end: 20130117
  2. GLEEVEC [Suspect]
     Dosage: 600 MG, QD
     Dates: end: 201303

REACTIONS (1)
  - Neutropenic sepsis [Fatal]
